FAERS Safety Report 7888918-9 (Version None)
Quarter: 2011Q4

REPORT INFORMATION
  Report Type: 
  Country: None (occurrence: None)
  Receive Date: 20111031
  Receipt Date: 20111013
  Transmission Date: 20120403
  Serious: Yes (Hospitalization, Other)
  Sender: FDA-Public Use
  Company Number: 7089564

PATIENT
  Age: 54 Year
  Sex: Male

DRUGS (11)
  1. GLICLAZIDE (GLICLAZIDE) (GLICLAZIDE) [Suspect]
     Indication: PRODUCT USED FOR UNKNOWN INDICATION
     Dosage: 320 MG (320 MG,1 IN 1 D)
  2. QUININE SULFATE [Suspect]
     Indication: PRODUCT USED FOR UNKNOWN INDICATION
  3. METFORMIN HCL [Suspect]
     Indication: PRODUCT USED FOR UNKNOWN INDICATION
     Dosage: 2 GM (2 GM,1 IN 1 D)
  4. AMITRIPTYLINE HCL [Suspect]
     Indication: PRODUCT USED FOR UNKNOWN INDICATION
  5. ROSUVASTATIN [Suspect]
     Indication: PRODUCT USED FOR UNKNOWN INDICATION
  6. INSULIN GLARGINE (INSULIN GLARGINE) (INSULIN GLARGINE) [Suspect]
     Indication: PRODUCT USED FOR UNKNOWN INDICATION
     Dosage: (116 IU)
  7. EXENATIDE (EXENATIDE) (EXENATIDE) [Suspect]
     Indication: PRODUCT USED FOR UNKNOWN INDICATION
     Dosage: 10 MCG (5 MCG,2 IN 1 D) ; 20 MCG (10 MCG,2 IN 1 D)
  8. CANDESARTAN CILEXETIL [Suspect]
  9. PREGABALIN [Suspect]
     Indication: PRODUCT USED FOR UNKNOWN INDICATION
  10. ASPIRIN [Suspect]
     Indication: PRODUCT USED FOR UNKNOWN INDICATION
  11. LEVOTHYROXINE SODIUM [Suspect]
     Indication: PRODUCT USED FOR UNKNOWN INDICATION

REACTIONS (4)
  - GASTROINTESTINAL DISORDER [None]
  - RENAL FAILURE ACUTE [None]
  - BODY MASS INDEX DECREASED [None]
  - MALAISE [None]
